FAERS Safety Report 8198257-7 (Version None)
Quarter: 2012Q1

REPORT INFORMATION
  Report Type: 
  Country: None (occurrence: None)
  Receive Date: 20120309
  Receipt Date: 20111220
  Transmission Date: 20120608
  Serious: No
  Sender: FDA-Public Use
  Company Number: US-AMGEN-USASP2011067836

PATIENT
  Age: 82 Year
  Sex: Female

DRUGS (7)
  1. NEXIUM [Concomitant]
  2. VITAMIN E [Concomitant]
  3. CALCIUM [Concomitant]
  4. PROLIA [Suspect]
     Indication: OSTEOPENIA
     Dosage: 60 MG, Q6MO
     Dates: start: 20110101
  5. VITAMIN D [Concomitant]
  6. LISINOPRIL [Concomitant]
  7. VITAMIN B COMPLEX CAP [Concomitant]

REACTIONS (4)
  - PAIN IN EXTREMITY [None]
  - PAIN [None]
  - NECK PAIN [None]
  - ARTHRALGIA [None]
